FAERS Safety Report 16114611 (Version 1)
Quarter: 2019Q1

REPORT INFORMATION
  Report Type: Spontaneous
  Country: DK (occurrence: DK)
  Receive Date: 20190325
  Receipt Date: 20190325
  Transmission Date: 20190418
  Serious: Yes (Hospitalization)
  Sender: FDA-Public Use
  Company Number: DK-NOVOPROD-652856

PATIENT
  Age: 57 Year
  Sex: Male

DRUGS (5)
  1. SIMVASTATIN. [Concomitant]
     Active Substance: SIMVASTATIN
     Indication: HYPERCHOLESTEROLAEMIA
     Dosage: 20 MG, QD, STYRKE: 20 MG
     Route: 048
     Dates: start: 201608
  2. CANDESARTAN+HYDROCHLOROTHIAZIDE [Concomitant]
     Active Substance: CANDESARTAN CILEXETIL\HYDROCHLOROTHIAZIDE
     Indication: HYPERTENSION
     Dosage: 2 DF, QD, STYRKE: 16 + 12.5 MG
     Route: 048
     Dates: start: 20161118
  3. PARACETAMOL [Concomitant]
     Active Substance: ACETAMINOPHEN
     Indication: PAIN
     Dosage: 3000 MG, QD, STYRKE: 1000 MG
     Route: 048
     Dates: start: 20141215
  4. METFORMIN [Concomitant]
     Active Substance: METFORMIN HYDROCHLORIDE
     Indication: TYPE 2 DIABETES MELLITUS
     Dosage: 2000 MG, QD, STYRKE: 1000 MG
     Route: 048
     Dates: start: 20161215
  5. OZEMPIC [Suspect]
     Active Substance: SEMAGLUTIDE
     Indication: TYPE 2 DIABETES MELLITUS
     Dosage: 0.25 MG, QW
     Route: 065
     Dates: start: 20190211, end: 20190217

REACTIONS (4)
  - Diarrhoea [Unknown]
  - Metabolic acidosis [Recovered/Resolved]
  - Blood creatinine increased [Recovered/Resolved]
  - Prerenal failure [Recovered/Resolved]

NARRATIVE: CASE EVENT DATE: 20190213
